FAERS Safety Report 22040712 (Version 2)
Quarter: 2023Q1

REPORT INFORMATION
  Report Type: Spontaneous
  Country: FR (occurrence: FR)
  Receive Date: 20230227
  Receipt Date: 20230313
  Transmission Date: 20230417
  Serious: Yes (Death, Other)
  Sender: FDA-Public Use
  Company Number: FR-INCYTE CORPORATION-2023IN001852

PATIENT

DRUGS (1)
  1. TAFASITAMAB [Suspect]
     Active Substance: TAFASITAMAB
     Indication: Non-Hodgkin^s lymphoma
     Dosage: C1 J22
     Route: 065
     Dates: start: 20220805, end: 20220905

REACTIONS (5)
  - Death [Fatal]
  - Sepsis [Unknown]
  - Non-Hodgkin^s lymphoma [Unknown]
  - Disease progression [Unknown]
  - Off label use [Unknown]

NARRATIVE: CASE EVENT DATE: 20220805
